FAERS Safety Report 4579704-6 (Version None)
Quarter: 2005Q1

REPORT INFORMATION
  Report Type: 
  Country: None (occurrence: None)
  Receive Date: 20050210
  Receipt Date: 20050202
  Transmission Date: 20050727
  Serious: Yes (Hospitalization)
  Sender: FDA-Public Use
  Company Number: 211818

PATIENT
  Age: 44 Year
  Sex: Female
  Weight: 73 kg

DRUGS (5)
  1. OMALIZUMAB (OMALIZUMAB) PWDR + SOLVENT, INJECTION SOLN, 150 MG [Suspect]
     Indication: ASTHMA
     Dosage: 150 MG, Q4W
     Dates: start: 20031007
  2. ADVAIR (FLUTICASONE PROPIONATE, SALMETEROL XINAFOATE) [Concomitant]
  3. SINGULAIR [Concomitant]
  4. NEXIUM [Concomitant]
  5. ALLERGY IMMUNOTHERAPY (ALLERGENIC EXTRACTS) [Concomitant]

REACTIONS (9)
  - ASTHMA [None]
  - CONDITION AGGRAVATED [None]
  - DYSPHONIA [None]
  - LARYNGITIS [None]
  - PRODUCTIVE COUGH [None]
  - RESPIRATORY DISTRESS [None]
  - STRIDOR [None]
  - THERAPY NON-RESPONDER [None]
  - VIRAL INFECTION [None]
